FAERS Safety Report 9607695 (Version 1)
Quarter: 2013Q4

REPORT INFORMATION
  Report Type: Spontaneous
  Country: BR (occurrence: BR)
  Receive Date: 20131009
  Receipt Date: 20131009
  Transmission Date: 20140711
  Serious: Yes (Other)
  Sender: FDA-Public Use
  Company Number: BR-JNJFOC-20131001550

PATIENT
  Age: 25 Year
  Sex: Male

DRUGS (1)
  1. REMICADE [Suspect]
     Indication: CROHN^S DISEASE
     Dosage: 2 AMPOULES; 1ST INDUCTION DOSE
     Route: 042
     Dates: start: 20130924

REACTIONS (8)
  - Tachycardia [Recovered/Resolved]
  - Throat tightness [Recovered/Resolved]
  - Dyspnoea [Recovered/Resolved]
  - Infusion related reaction [Unknown]
  - Rash [Recovered/Resolved]
  - Ocular hyperaemia [Recovered/Resolved]
  - Hyperhidrosis [Recovered/Resolved]
  - Somnolence [Unknown]
